FAERS Safety Report 9013851 (Version 1)
Quarter: 2013Q1

REPORT INFORMATION
  Report Type: Spontaneous
  Country: US (occurrence: None)
  Receive Date: 20130108
  Receipt Date: 20130108
  Transmission Date: 20140127
  Serious: Yes (Life-Threatening, Other)
  Sender: FDA-Public Use
  Company Number: None

PATIENT
  Age: 43 Year
  Sex: Female
  Weight: 76.2 kg

DRUGS (2)
  1. MONTELUKAST [Suspect]
     Indication: ASTHMA
     Route: 048
  2. MONTELUKAST [Suspect]
     Indication: HYPERSENSITIVITY
     Route: 048

REACTIONS (3)
  - Drug ineffective [None]
  - Asthma [None]
  - Product substitution issue [None]
